FAERS Safety Report 8618823-1 (Version None)
Quarter: 2012Q3

REPORT INFORMATION
  Report Type: 
  Country: None (occurrence: None)
  Receive Date: 20120824
  Receipt Date: 20120814
  Transmission Date: 20120928
  Serious: No
  Sender: FDA-Public Use
  Company Number: US-009507513-1208USA008245

PATIENT

DRUGS (1)
  1. INVANZ [Suspect]
     Indication: INFECTION

REACTIONS (1)
  - TRANSAMINASES INCREASED [None]
